FAERS Safety Report 4323513-X (Version None)
Quarter: 2004Q1

REPORT INFORMATION
  Report Type: 
  Country: None (occurrence: None)
  Receive Date: 20040322
  Receipt Date: 20040308
  Transmission Date: 20041129
  Serious: No
  Sender: FDA-Public Use
  Company Number: 04P-167-0252993-00

PATIENT
  Age: 44 Year
  Sex: Female

DRUGS (2)
  1. MERIDIA [Suspect]
     Dosage: 10 MG, 1 IN 1 D, PER ORAL
     Route: 048
     Dates: start: 20040130
  2. NIGHT NURSE [Suspect]
     Indication: NASOPHARYNGITIS
     Dosage: 10 ML, AT NIGHT, PER ORAL
     Route: 048
     Dates: start: 20040218

REACTIONS (4)
  - ABNORMAL BEHAVIOUR [None]
  - AGITATION [None]
  - ANXIETY [None]
  - NASOPHARYNGITIS [None]
